FAERS Safety Report 9389000 (Version 4)
Quarter: 2014Q1

REPORT INFORMATION
  Report Type: Report from Study
  Country: NL (occurrence: NL)
  Receive Date: 20130708
  Receipt Date: 20140203
  Transmission Date: 20141002
  Serious: Yes (Hospitalization, Other)
  Sender: FDA-Public Use
  Company Number: NL-CELGENEUS-114-50794-13064149

PATIENT
  Age: 82 Year
  Sex: Male
  Weight: 65 kg

DRUGS (30)
  1. VIDAZA [Suspect]
     Indication: MYELODYSPLASTIC SYNDROME
     Route: 058
     Dates: start: 20130327
  2. VIDAZA [Suspect]
     Route: 058
     Dates: start: 20130424, end: 20130501
  3. AMLODIPINE [Concomitant]
     Indication: PRODUCT USED FOR UNKNOWN INDICATION
     Dosage: 5 MILLIGRAM
     Route: 048
     Dates: start: 20130506
  4. BUMETANIDE [Concomitant]
     Indication: PRODUCT USED FOR UNKNOWN INDICATION
     Route: 065
     Dates: start: 20130110
  5. BUMETANIDE [Concomitant]
     Dosage: 2 MILLIGRAM
     Route: 048
     Dates: start: 20130510
  6. SIMVASTATIN [Concomitant]
     Indication: PRODUCT USED FOR UNKNOWN INDICATION
     Route: 065
     Dates: start: 2000
  7. SIMVASTATIN [Concomitant]
     Dosage: 1 TABLET
     Route: 048
     Dates: start: 20130506
  8. SELOKEEN [Concomitant]
     Indication: PRODUCT USED FOR UNKNOWN INDICATION
     Route: 065
     Dates: start: 2000
  9. SELOKEEN [Concomitant]
     Route: 065
     Dates: start: 20130506
  10. PANTOPRAZOLE [Concomitant]
     Indication: PRODUCT USED FOR UNKNOWN INDICATION
     Route: 065
     Dates: start: 20120805
  11. PANTOPRAZOLE [Concomitant]
     Dosage: 40 MILLIGRAM
     Route: 048
     Dates: start: 20130506
  12. HYDROXOCOBALAMINE [Concomitant]
     Indication: PRODUCT USED FOR UNKNOWN INDICATION
     Route: 065
     Dates: start: 20120815
  13. FENTANYL [Concomitant]
     Indication: PRODUCT USED FOR UNKNOWN INDICATION
     Route: 065
     Dates: start: 20130304
  14. FENTANYL [Concomitant]
     Route: 062
     Dates: start: 20130506
  15. MOVICOLON [Concomitant]
     Indication: PRODUCT USED FOR UNKNOWN INDICATION
     Route: 065
     Dates: start: 20120630
  16. MOVICOLON [Concomitant]
     Dosage: 2 DOSAGE FORMS
     Route: 048
     Dates: start: 20130506
  17. PARACETAMOL [Concomitant]
     Indication: PRODUCT USED FOR UNKNOWN INDICATION
     Route: 065
     Dates: start: 20111111
  18. PARACETAMOL [Concomitant]
     Route: 048
     Dates: start: 20130506
  19. METOCLOPRAMIDE [Concomitant]
     Indication: PRODUCT USED FOR UNKNOWN INDICATION
     Route: 065
     Dates: start: 20130325, end: 20130403
  20. CEFUROXIN [Concomitant]
     Indication: PRODUCT USED FOR UNKNOWN INDICATION
     Dosage: 750 MILLIGRAM
     Route: 041
     Dates: start: 20130426, end: 20130513
  21. CEFUROXIN [Concomitant]
     Dosage: 750 MILLIGRAM
     Route: 041
     Dates: start: 20130513
  22. CIPROXIN [Concomitant]
     Indication: PRODUCT USED FOR UNKNOWN INDICATION
     Route: 065
     Dates: start: 20130429, end: 20130517
  23. CIPROXIN [Concomitant]
     Dosage: 500 MILLIGRAM
     Route: 048
     Dates: start: 20130510, end: 20130517
  24. VANCOMYCIN [Concomitant]
     Indication: PRODUCT USED FOR UNKNOWN INDICATION
     Route: 065
     Dates: start: 20130517
  25. RED BLOOD CELLS [Concomitant]
     Indication: PRODUCT USED FOR UNKNOWN INDICATION
     Route: 065
     Dates: start: 20130415, end: 20130415
  26. RED BLOOD CELLS [Concomitant]
     Route: 065
     Dates: start: 20130410, end: 20130410
  27. RED BLOOD CELLS [Concomitant]
     Route: 065
     Dates: start: 20130417, end: 20130417
  28. RED BLOOD CELLS [Concomitant]
     Route: 065
     Dates: start: 20130422, end: 20130422
  29. ARANESP [Concomitant]
     Indication: PRODUCT USED FOR UNKNOWN INDICATION
     Route: 050
     Dates: start: 20130506
  30. ARANESP [Concomitant]
     Route: 065
     Dates: start: 20120501

REACTIONS (7)
  - Bladder transitional cell carcinoma recurrent [Not Recovered/Not Resolved]
  - Inflammatory marker increased [Recovered/Resolved]
  - Pyelonephritis [Recovered/Resolved with Sequelae]
  - Nausea [Not Recovered/Not Resolved]
  - Vomiting [Not Recovered/Not Resolved]
  - Pain [Recovered/Resolved with Sequelae]
  - Urinary tract infection bacterial [Unknown]
